FAERS Safety Report 10169253 (Version 1)
Quarter: 2014Q2

REPORT INFORMATION
  Report Type: Spontaneous
  Country: KR (occurrence: KR)
  Receive Date: 20140513
  Receipt Date: 20140513
  Transmission Date: 20141212
  Serious: Yes (Hospitalization)
  Sender: FDA-Public Use
  Company Number: KR-MERCK-1405KOR005265

PATIENT
  Sex: Female

DRUGS (1)
  1. NOXAFIL [Suspect]
     Dosage: UNKNOWN
     Route: 048
     Dates: start: 2014

REACTIONS (1)
  - Adverse event [Unknown]
